FAERS Safety Report 15309757 (Version 1)
Quarter: 2018Q3

REPORT INFORMATION
  Report Type: Spontaneous
  Country: DE (occurrence: DE)
  Receive Date: 20180823
  Receipt Date: 20180823
  Transmission Date: 20181010
  Serious: Yes (Hospitalization)
  Sender: FDA-Public Use
  Company Number: DE-DRREDDYS-GER/GER/18/0103376

PATIENT
  Age: 39 Year
  Sex: Female
  Weight: 54 kg

DRUGS (5)
  1. DOCETAXEL. [Suspect]
     Active Substance: DOCETAXEL
     Indication: HER-2 POSITIVE BREAST CANCER
     Dosage: DATE OF LAST DOSE PRIOR TO SAE: 09/SEP/2016
     Route: 042
     Dates: start: 20160527, end: 20160909
  2. NOVALGIN (METAMIZOLE SODIUM) [Concomitant]
     Active Substance: METAMIZOLE SODIUM
     Indication: PAIN
     Route: 048
  3. PERTUZUMAB. [Suspect]
     Active Substance: PERTUZUMAB
     Indication: HER-2 POSITIVE BREAST CANCER
     Dosage: DATE OF LAST DOSE PRIOR TO SAE: 09/SEP/2016?DATE OF LAST DOSE PRIOR TO EVENT SECOND OCCURENCE OF ANE
     Route: 042
     Dates: start: 20160527
  4. IBUPROFEN. [Concomitant]
     Active Substance: IBUPROFEN
     Indication: PAIN
     Dosage: DAILY DOSE: 600 MG MILLGRAM(S) EVERY DAYS
     Route: 048
     Dates: start: 20160630
  5. HERCEPTIN [Suspect]
     Active Substance: TRASTUZUMAB
     Indication: HER-2 POSITIVE BREAST CANCER
     Dosage: DATE OF LAST DOSE PRIOR TO SAE: 09/SEP/2016?DATE OF LAST DOSE PRIOR TO EVENT SECOND OCCURENCE OF ANE
     Route: 042
     Dates: start: 20160527

REACTIONS (13)
  - Neutropenia [Recovered/Resolved]
  - Post-traumatic pain [Recovered/Resolved]
  - Haematoma [Recovered/Resolved]
  - Hypokinesia [Recovered/Resolved]
  - Hot flush [Recovered/Resolved]
  - Abdominal pain [Recovered/Resolved]
  - Polyneuropathy [Recovered/Resolved]
  - Epistaxis [Recovered/Resolved]
  - Anaemia [Recovered/Resolved]
  - Anal fissure [Recovered/Resolved]
  - Alopecia [Not Recovered/Not Resolved]
  - Decreased appetite [Recovered/Resolved]
  - Diarrhoea [Recovered/Resolved]

NARRATIVE: CASE EVENT DATE: 20160603
